FAERS Safety Report 15366966 (Version 1)
Quarter: 2018Q3

REPORT INFORMATION
  Report Type: Spontaneous
  Country: US (occurrence: US)
  Receive Date: 20180903
  Receipt Date: 20180903
  Transmission Date: 20181010
  Serious: Yes (Hospitalization, Disabling, Other)
  Sender: FDA-Public Use
  Company Number: None

PATIENT
  Age: 51 Year
  Sex: Female
  Weight: 86.85 kg

DRUGS (6)
  1. METHOTREXATE. [Concomitant]
     Active Substance: METHOTREXATE
  2. VITAMIN D [Concomitant]
     Active Substance: CHOLECALCIFEROL
  3. GABAPENTIN. [Concomitant]
     Active Substance: GABAPENTIN
  4. FOSAMAX [Suspect]
     Active Substance: ALENDRONATE SODIUM
     Indication: OSTEOPOROSIS
  5. FOLIC ACID. [Concomitant]
     Active Substance: FOLIC ACID
  6. VITAMIN B12 MOVE FREE ULTRA [Concomitant]

REACTIONS (6)
  - Pain [None]
  - Procedural complication [None]
  - Gait inability [None]
  - Product quality issue [None]
  - Femur fracture [None]
  - Pathological fracture [None]

NARRATIVE: CASE EVENT DATE: 20121012
